FAERS Safety Report 24746651 (Version 2)
Quarter: 2025Q1

REPORT INFORMATION
  Report Type: Report from Study
  Country: US (occurrence: US)
  Receive Date: 20241218
  Receipt Date: 20250117
  Transmission Date: 20250409
  Serious: No
  Sender: ABBVIE
  Company Number: US-ABBVIE-6047017

PATIENT
  Age: 72 Year
  Sex: Female
  Weight: 86.182 kg

DRUGS (5)
  1. RINVOQ [Suspect]
     Active Substance: UPADACITINIB
     Indication: Colitis ulcerative
     Dosage: 15 MILLIGRAM
     Route: 048
     Dates: start: 202411
  2. ALLEGRA [Concomitant]
     Active Substance: FEXOFENADINE HYDROCHLORIDE
     Indication: Product used for unknown indication
  3. METFORMIN [Concomitant]
     Active Substance: METFORMIN HYDROCHLORIDE
     Indication: Product used for unknown indication
  4. NADOLOL [Concomitant]
     Active Substance: NADOLOL
     Indication: Product used for unknown indication
  5. SINGULAIR [Concomitant]
     Active Substance: MONTELUKAST SODIUM
     Indication: Product used for unknown indication

REACTIONS (1)
  - Weight increased [Not Recovered/Not Resolved]

NARRATIVE: CASE EVENT DATE: 20250110
